FAERS Safety Report 6823697-5 (Version None)
Quarter: 2010Q3

REPORT INFORMATION
  Report Type: 
  Country: None (occurrence: None)
  Receive Date: 20100708
  Receipt Date: 20060830
  Transmission Date: 20110219
  Serious: No
  Sender: FDA-Public Use
  Company Number: US-PFIZER INC-2006105702

PATIENT
  Sex: Female
  Weight: 92.53 kg

DRUGS (3)
  1. CHANTIX [Suspect]
     Indication: SMOKING CESSATION THERAPY
     Dates: start: 20060826, end: 20060829
  2. ADVIL LIQUI-GELS [Concomitant]
     Indication: ARTHRALGIA
  3. ALL OTHER THERAPEUTIC PRODUCTS [Concomitant]

REACTIONS (1)
  - ARTHRALGIA [None]
